FAERS Safety Report 7187192-9 (Version None)
Quarter: 2010Q4

REPORT INFORMATION
  Report Type: 
  Country: None (occurrence: None)
  Receive Date: 20101222
  Receipt Date: 20101216
  Transmission Date: 20110411
  Serious: Yes (Hospitalization)
  Sender: FDA-Public Use
  Company Number: JP-PFIZER INC-2010106780

PATIENT
  Age: 87 Year
  Sex: Female
  Weight: 52 kg

DRUGS (14)
  1. CELECOX [Suspect]
     Indication: MUSCULOSKELETAL PAIN
     Dosage: 100 MG, 2X/DAY
     Dates: start: 20100614, end: 20100714
  2. OLMETEC [Concomitant]
     Indication: HYPERTENSION
     Dosage: 20 MG, 1X/DAY
     Route: 048
     Dates: start: 20061201
  3. ADALAT CC [Concomitant]
     Indication: HYPERTENSION
     Dosage: 20 MG, 2X/DAY
     Route: 048
     Dates: start: 20061201
  4. CRESTOR [Concomitant]
     Indication: HYPERCHOLESTEROLAEMIA
     Dosage: 2.5 MG, 1X/DAY
     Route: 048
     Dates: start: 20090727
  5. GASTER [Concomitant]
     Dosage: 10 MG, 2X/DAY
     Route: 048
     Dates: start: 20100614
  6. ADOFEED [Concomitant]
     Indication: MUSCULOSKELETAL PAIN
     Dosage: 40 MG, ONCE OR TWICE PER DAY
     Route: 062
     Dates: start: 20100614
  7. PLETAL [Concomitant]
     Indication: ANTIPLATELET THERAPY
     Dosage: 100 MG, 2X/DAY
     Dates: start: 20050701
  8. COMELIAN [Concomitant]
     Indication: ANTIPLATELET THERAPY
     Dosage: 50 MG, 3X/DAY
     Route: 048
     Dates: start: 20040301
  9. SIGMART [Concomitant]
     Indication: ANGINA PECTORIS
     Dosage: 50 MG, 3X/DAY
     Route: 048
     Dates: start: 20090330
  10. HOKUNALIN [Concomitant]
     Indication: ASTHMA
     Dosage: 2 MG, 1X/DAY
     Route: 062
     Dates: start: 20040301
  11. MYSLEE [Concomitant]
     Indication: INSOMNIA
     Dosage: 5 MG, 1X/DAY
     Route: 048
     Dates: start: 20100614, end: 20100713
  12. RIZE [Concomitant]
     Indication: ANXIOLYTIC THERAPY
     Dosage: 5 MG, 2X/DAY
     Route: 048
     Dates: start: 20100716
  13. LENDORMIN [Concomitant]
     Indication: INSOMNIA
     Dosage: 0.25 MG, 1X/DAY
     Route: 048
     Dates: start: 20100714
  14. PLAVIX [Concomitant]
     Indication: ANTIPLATELET THERAPY
     Dosage: 75 MG, 1X/DAY
     Route: 048
     Dates: start: 20100720

REACTIONS (3)
  - ANGINA PECTORIS [None]
  - ANXIETY [None]
  - ATRIAL FIBRILLATION [None]
